FAERS Safety Report 11896646 (Version 1)
Quarter: 2016Q1

REPORT INFORMATION
  Report Type: Spontaneous
  Country: US (occurrence: US)
  Receive Date: 20160107
  Receipt Date: 20160107
  Transmission Date: 20160526
  Serious: No
  Sender: FDA-Public Use
  Company Number: ALCN2015US008079

PATIENT
  Age: 81 Year
  Sex: Male

DRUGS (1)
  1. ZADITOR [Suspect]
     Active Substance: KETOTIFEN FUMARATE
     Indication: EYE PRURITUS
     Dosage: 1 GTT, QD
     Route: 047
     Dates: start: 20151223, end: 20151224

REACTIONS (1)
  - Eyelid margin crusting [Recovered/Resolved]

NARRATIVE: CASE EVENT DATE: 20151223
